FAERS Safety Report 15981251 (Version 1)
Quarter: 2019Q1

REPORT INFORMATION
  Report Type: Spontaneous
  Country: US (occurrence: US)
  Receive Date: 20190218
  Receipt Date: 20190218
  Transmission Date: 20190418
  Serious: No
  Sender: FDA-Public Use
  Company Number: None

PATIENT
  Age: 57 Year
  Sex: Female
  Weight: 65.25 kg

DRUGS (10)
  1. HENEGREN [Concomitant]
  2. LISINOPRIL/ HYDROCHLORYHIZIDE [Concomitant]
  3. COQ10 [Concomitant]
     Active Substance: UBIDECARENONE
  4. CYMBALTA [Suspect]
     Active Substance: DULOXETINE HYDROCHLORIDE
     Indication: DEPRESSION
     Dosage: ?          QUANTITY:1 CAPSULE(S);?
     Route: 048
     Dates: start: 20140101, end: 20190218
  5. CYMBALTA [Suspect]
     Active Substance: DULOXETINE HYDROCHLORIDE
     Indication: FIBROMYALGIA
     Dosage: ?          QUANTITY:1 CAPSULE(S);?
     Route: 048
     Dates: start: 20140101, end: 20190218
  6. ATENENOL [Concomitant]
  7. LYSINE [Concomitant]
     Active Substance: LYSINE
  8. MAXALT [Concomitant]
     Active Substance: RIZATRIPTAN BENZOATE
  9. VITAMIN A,B, D, E, [Concomitant]
  10. TUMERIC [Concomitant]
     Active Substance: HERBALS\TURMERIC

REACTIONS (2)
  - Drug withdrawal syndrome [None]
  - Migraine [None]

NARRATIVE: CASE EVENT DATE: 20190218
